FAERS Safety Report 14091396 (Version 1)
Quarter: 2017Q4

REPORT INFORMATION
  Report Type: Spontaneous
  Country: GB (occurrence: GB)
  Receive Date: 20171016
  Receipt Date: 20171016
  Transmission Date: 20180321
  Serious: Yes (Other)
  Sender: FDA-Public Use
  Company Number: GB-B.I. PHARMACEUTICALS,INC./RIDGEFIELD-2017-16-000101

PATIENT
  Age: 54 Year
  Sex: Female
  Weight: 73.93 kg

DRUGS (2)
  1. CATAPRES-TTS [Suspect]
     Active Substance: CLONIDINE
     Indication: MENOPAUSAL SYMPTOMS
     Route: 048
     Dates: start: 201611, end: 20170910
  2. MENOHERB [Concomitant]
     Indication: PRODUCT USED FOR UNKNOWN INDICATION
     Route: 065

REACTIONS (2)
  - Polymorphic light eruption [Not Recovered/Not Resolved]
  - Solar urticaria [Not Recovered/Not Resolved]

NARRATIVE: CASE EVENT DATE: 20170716
